FAERS Safety Report 12618014 (Version 1)
Quarter: 2016Q3

REPORT INFORMATION
  Report Type: Spontaneous
  Country: TW (occurrence: TW)
  Receive Date: 20160803
  Receipt Date: 20160803
  Transmission Date: 20161109
  Serious: Yes (Death, Other)
  Sender: FDA-Public Use
  Company Number: TW-CELGENEUS-TWN-2016075609

PATIENT
  Age: 69 Year
  Sex: Male

DRUGS (1)
  1. POMALIDOMIDE [Suspect]
     Active Substance: POMALIDOMIDE
     Indication: PLASMA CELL MYELOMA
     Dosage: 2 MILLIGRAM
     Route: 048
     Dates: end: 201602

REACTIONS (3)
  - Plasma cell myeloma [Fatal]
  - Jaundice cholestatic [Unknown]
  - Paraplegia [Unknown]

NARRATIVE: CASE EVENT DATE: 20160218
